FAERS Safety Report 25868485 (Version 1)
Quarter: 2025Q4

REPORT INFORMATION
  Report Type: Spontaneous
  Country: US (occurrence: US)
  Receive Date: 20251001
  Receipt Date: 20251001
  Transmission Date: 20260117
  Serious: No
  Sender: Haleon PLC
  Company Number: US-HALEON-2265554

PATIENT
  Sex: Male

DRUGS (1)
  1. GAS-X ULTIMATE STRENGTH SOFTGELS [Suspect]
     Active Substance: DIMETHICONE
     Indication: Product used for unknown indication

REACTIONS (1)
  - Drug ineffective [Unknown]
